FAERS Safety Report 6575058-4 (Version None)
Quarter: 2010Q1

REPORT INFORMATION
  Report Type: 
  Country: None (occurrence: None)
  Receive Date: 20100201
  Receipt Date: 20100122
  Transmission Date: 20100710
  Serious: Yes (Hospitalization)
  Sender: FDA-Public Use
  Company Number: PAR_03147_2009

PATIENT
  Age: 82 Year
  Sex: Female

DRUGS (5)
  1. IBUPROFEN [Suspect]
     Indication: PAIN
     Dosage: 600 MG ORAL
     Route: 048
     Dates: start: 20090729, end: 20090729
  2. IBUPROFEN [Suspect]
     Indication: PAIN
     Dosage: 1200 MG ORAL
     Route: 048
     Dates: start: 20090707, end: 20090726
  3. ASS (ASS HEXAL) (NOT SPECIFIED) [Suspect]
     Indication: THROMBOSIS PROPHYLAXIS
     Dosage: 100 MG, ORAL
     Route: 048
     Dates: start: 19920101
  4. BIPRETERAX [Concomitant]
  5. PANTOZOL [Concomitant]

REACTIONS (3)
  - COLITIS ISCHAEMIC [None]
  - DIVERTICULUM [None]
  - HYPERTENSIVE CRISIS [None]
